FAERS Safety Report 25832596 (Version 1)
Quarter: 2025Q3

REPORT INFORMATION
  Report Type: Spontaneous
  Country: US (occurrence: None)
  Receive Date: 20250920
  Receipt Date: 20250920
  Transmission Date: 20251021
  Serious: Yes (Hospitalization)
  Sender: FDA-CTU
  Company Number: None

PATIENT
  Age: 75 Year
  Sex: Male
  Weight: 91 kg

DRUGS (2)
  1. IOHEXOL [Suspect]
     Active Substance: IOHEXOL
     Dates: end: 20250812
  2. CARBOPLATIN [Suspect]
     Active Substance: CARBOPLATIN

REACTIONS (2)
  - Rash [None]
  - Pneumonia [None]

NARRATIVE: CASE EVENT DATE: 20250822
